FAERS Safety Report 18028878 (Version 1)
Quarter: 2020Q3

REPORT INFORMATION
  Report Type: Spontaneous
  Country: US (occurrence: US)
  Receive Date: 20200715
  Receipt Date: 20200715
  Transmission Date: 20201103
  Serious: Yes (Other)
  Sender: FDA-Public Use
  Company Number: US-PURDUE-USA-2020-0156367

PATIENT
  Sex: Male

DRUGS (2)
  1. HEROIN [Suspect]
     Active Substance: DIAMORPHINE
     Indication: WITHDRAWAL SYNDROME
     Route: 065
  2. OXYCODONE HYDROCHLORIDE (SIMILAR TO NDA 22?272) [Suspect]
     Active Substance: OXYCODONE HYDROCHLORIDE
     Indication: BACK PAIN
     Route: 048

REACTIONS (8)
  - Limb injury [Unknown]
  - Back injury [Unknown]
  - Withdrawal syndrome [Unknown]
  - Neck injury [Unknown]
  - Road traffic accident [Unknown]
  - Drug dependence [Unknown]
  - Pain [Unknown]
  - Drug abuse [Unknown]

NARRATIVE: CASE EVENT DATE: 201812
